FAERS Safety Report 7198095-8 (Version None)
Quarter: 2010Q4

REPORT INFORMATION
  Report Type: 
  Country: None (occurrence: None)
  Receive Date: 20101227
  Receipt Date: 20101214
  Transmission Date: 20110411
  Serious: Yes (Hospitalization, Disabling)
  Sender: FDA-Public Use
  Company Number: ES-B.I. PHARMACEUTICALS,INC./RIDGEFIELD-2010-DE-06959GD

PATIENT
  Age: 68 Year
  Sex: Female

DRUGS (3)
  1. PRAMIPEXOLE [Suspect]
     Indication: PARKINSON'S DISEASE
     Dosage: 4 MG
  2. AMANTADINE [Suspect]
     Indication: PARKINSON'S DISEASE
     Dosage: 200 MG
  3. CARBIDOPA W/ENTACAPONE/LEVODOPA [Suspect]
     Indication: PARKINSON'S DISEASE
     Dosage: LEVODOPA/CARBIDOPA/ENTACAPONE FIVE DAILY DOSES OF 150/50/200 MG

REACTIONS (6)
  - CONFUSIONAL STATE [None]
  - DYSKINESIA [None]
  - HALLUCINATIONS, MIXED [None]
  - HYPERPYREXIA [None]
  - RHABDOMYOLYSIS [None]
  - SOMNOLENCE [None]
